FAERS Safety Report 8016831-5 (Version None)
Quarter: 2012Q1

REPORT INFORMATION
  Report Type: 
  Country: None (occurrence: None)
  Receive Date: 20120102
  Receipt Date: 20111228
  Transmission Date: 20120608
  Serious: Yes (Other)
  Sender: FDA-Public Use
  Company Number: US-ASTRAZENECA-2009SE22894

PATIENT
  Age: 12671 Day
  Sex: Female
  Weight: 120.2 kg

DRUGS (15)
  1. SEROQUEL [Suspect]
     Route: 048
     Dates: start: 19970101, end: 20050101
  2. ALBUTEROL [Concomitant]
     Dates: start: 19990601
  3. SEROQUEL [Suspect]
     Route: 048
     Dates: start: 19990514
  4. DIPHENHYDRAMINE HCL [Concomitant]
     Dates: start: 19981203
  5. METOPROLOL [Concomitant]
     Dates: start: 19990323
  6. SEROQUEL [Suspect]
     Indication: HALLUCINATION, AUDITORY
     Route: 048
     Dates: start: 19960101
  7. TRAZODONE HCL [Concomitant]
     Dates: start: 19990512
  8. CARBAMAZEPINE [Concomitant]
     Dates: start: 19990113
  9. SEROQUEL [Suspect]
     Route: 048
     Dates: start: 20050101, end: 20070101
  10. DOXEPIN [Concomitant]
     Dates: start: 19990610
  11. TRIPR/PSEUDO [Concomitant]
     Dates: start: 19990601
  12. RISPERDAL [Concomitant]
     Dates: start: 20080101
  13. TRAZODONE HCL [Concomitant]
     Dates: start: 19990310
  14. TRIAMCINOLONE [Concomitant]
     Dates: start: 19981119
  15. DILANTIN [Concomitant]
     Indication: EPILEPSY

REACTIONS (6)
  - TYPE 2 DIABETES MELLITUS [None]
  - DIABETIC RETINOPATHY [None]
  - VISUAL ACUITY REDUCED [None]
  - WEIGHT INCREASED [None]
  - TYPE 1 DIABETES MELLITUS [None]
  - HALLUCINATION, AUDITORY [None]
